FAERS Safety Report 17230858 (Version 1)
Quarter: 2020Q1

REPORT INFORMATION
  Report Type: Spontaneous
  Country: CA (occurrence: CA)
  Receive Date: 20200103
  Receipt Date: 20200103
  Transmission Date: 20200409
  Serious: Yes (Other)
  Sender: FDA-Public Use
  Company Number: CA-TEVA-2019-CA-1162364

PATIENT
  Age: 66 Year
  Sex: Female
  Weight: 71 kg

DRUGS (10)
  1. METHOTREXATE INJECTION, USP [Suspect]
     Active Substance: METHOTREXATE
     Indication: DIFFUSE LARGE B-CELL LYMPHOMA STAGE IV
     Route: 042
  2. RANITIDINE. [Concomitant]
     Active Substance: RANITIDINE
  3. SODIUM BICARBONATE INJECTABLE [Concomitant]
  4. BRIVLERA [Concomitant]
     Active Substance: BRIVARACETAM
  5. DEXAMETHASONE. [Concomitant]
     Active Substance: DEXAMETHASONE
  6. SODIUM BICARBONATE. [Concomitant]
     Active Substance: SODIUM BICARBONATE
  7. ONDANSETRON [Concomitant]
     Active Substance: ONDANSETRON
  8. NYSTATIN ORAL SUSPENSION 100000UNIT/ML USP [Concomitant]
     Active Substance: NYSTATIN
  9. LACTULOSE SYRUP [Concomitant]
     Active Substance: LACTULOSE
  10. POTASSIUM CHLORIDE. [Concomitant]
     Active Substance: POTASSIUM CHLORIDE

REACTIONS (6)
  - Musculoskeletal disorder [Recovering/Resolving]
  - Erythema [Recovering/Resolving]
  - Neuropathy peripheral [Recovering/Resolving]
  - Joint stiffness [Recovering/Resolving]
  - Peripheral swelling [Recovering/Resolving]
  - Pain [Recovering/Resolving]
